FAERS Safety Report 12614041 (Version 12)
Quarter: 2019Q2

REPORT INFORMATION
  Report Type: Spontaneous
  Country: US (occurrence: US)
  Receive Date: 20160802
  Receipt Date: 20190415
  Transmission Date: 20190711
  Serious: Yes (Other)
  Sender: FDA-Public Use
  Company Number: US-PFIZER INC-2016368651

PATIENT
  Age: 70 Year
  Sex: Female
  Weight: 66 kg

DRUGS (41)
  1. ADVIL [Concomitant]
     Active Substance: IBUPROFEN
     Dosage: 200 MG (1 TABLET) AS NEEDED
     Route: 048
  2. OXYCODONE [Concomitant]
     Active Substance: OXYCODONE
     Indication: PAIN
     Dosage: UNK (1/2 TO 1 TABS ORALLY EVERY 12 HOURS)
     Route: 048
  3. NYSTATIN. [Concomitant]
     Active Substance: NYSTATIN
     Dosage: 5 ML, 4X/DAY
     Route: 048
  4. LIDODERM [Concomitant]
     Active Substance: LIDOCAINE
     Dosage: UNK, APPLY TOPICALLY TO AFFECTED AREA ONCE A DAY 12 HOURS ON AND 12 HOURS OFF
     Route: 061
  5. GAS-X [Concomitant]
     Active Substance: DIMETHICONE
     Dosage: 125 MG, 1X/DAY
     Route: 048
  6. PROPRANOLOL [Concomitant]
     Active Substance: PROPRANOLOL HYDROCHLORIDE
     Dosage: 10 MG (1 TABLET), ONCE A DAY
     Route: 048
  7. LOSARTAN. [Concomitant]
     Active Substance: LOSARTAN
     Dosage: 75 MG, 1X/DAY
     Route: 048
  8. CALCIUM + VITAMIN D [Concomitant]
     Active Substance: CALCIUM\VITAMIN D
     Dosage: 1200 MG/400 IU, ONCE A DAY
     Route: 048
  9. XANAX [Concomitant]
     Active Substance: ALPRAZOLAM
     Dosage: UNK, EVERY OTHER DAY
  10. TRAMADOL. [Concomitant]
     Active Substance: TRAMADOL
     Dosage: UNK
  11. IMODIUM [Concomitant]
     Active Substance: LOPERAMIDE HYDROCHLORIDE
     Dosage: 2 MG, AS NEEDED
     Route: 048
  12. IBRANCE [Suspect]
     Active Substance: PALBOCICLIB
     Dosage: 125 MG, CYCLIC (21 DAYS FOLLOWED BY 7 DAYS OFF),
     Route: 048
     Dates: start: 20160721
  13. ONDANSETRON [Concomitant]
     Active Substance: ONDANSETRON
     Dosage: 8 MG, UNK
     Route: 048
  14. RED YEAST RICE [Concomitant]
     Active Substance: DIETARY SUPPLEMENT
     Dosage: 600 MG, UNK
  15. TRAMADOL. [Concomitant]
     Active Substance: TRAMADOL
     Indication: PAIN
     Dosage: 50 MG, (1 TABLET) AS NEEDED  EVERY 6 HOURS FOR 10 DAYS
     Route: 048
  16. ASPERCREME NOS [Concomitant]
     Active Substance: MENTHOL\TROLAMINE SALICYLATE
     Dosage: UNK, (APPLY TOPICALLY TO AFFECTED AREA)
     Route: 061
  17. CALCIUM 600 + D [Concomitant]
     Active Substance: CALCIUM\VITAMIN D
     Dosage: UNK
  18. IBRANCE [Suspect]
     Active Substance: PALBOCICLIB
     Indication: BREAST CANCER METASTATIC
     Dosage: 125 MG, UNK
     Dates: start: 20160719
  19. IBRANCE [Suspect]
     Active Substance: PALBOCICLIB
     Dosage: 125 MG, CYCLIC (ONE CAPSULE BY MOUTH ONCE DAILY WITH FOOD FOR 21 DAYS, THEN 7 DAYS OFF)
     Route: 048
     Dates: start: 20160721
  20. NORCO [Concomitant]
     Active Substance: ACETAMINOPHEN\HYDROCODONE BITARTRATE
     Indication: PAIN
     Dosage: 1 TABLET, EVERY 6 HOURS AS NEEDED FOR PAIN (DO NOT EXCEED 2 TABS IN 24 HOURS)
     Route: 048
  21. BUTALBITAL, ACETAMINOPHEN, AND CAFFEINE [Concomitant]
     Active Substance: ACETAMINOPHEN\BUTALBITAL\CAFFEINE
     Indication: HEADACHE
     Dosage: 1 CAPSULE AS NEEDED (EVERY 6 HOURS)
     Route: 048
  22. FISH OIL [Concomitant]
     Active Substance: FISH OIL
     Dosage: 1200 MG, ONCE A DAY
     Route: 048
  23. RED YEAST RICE [Concomitant]
     Active Substance: DIETARY SUPPLEMENT
     Dosage: 1200 MG, ONCE A DAY
     Route: 048
  24. OXYBUTYNIN. [Concomitant]
     Active Substance: OXYBUTYNIN CHLORIDE
     Indication: MAJOR DEPRESSION
     Dosage: 5 MG, AS NEEDED (1 TAB ORALLY 3 TIMESE A DAYS X 10 DAYS )
     Route: 048
  25. EXCEDRIN MIGRAINE [Concomitant]
     Active Substance: ACETAMINOPHEN\ASPIRIN\CAFFEINE
     Dosage: 250 MG, AS NEEDED
     Route: 048
  26. ONDANSETRON [Concomitant]
     Active Substance: ONDANSETRON
     Indication: NAUSEA
     Dosage: 8 MG (1 TABLET), AS NEEDED (3 TIMES A DAY X 10 DAYS)
     Route: 048
  27. LOSARTAN. [Concomitant]
     Active Substance: LOSARTAN
     Dosage: 50 MG (1 TABLET), ONCE A DAY
     Route: 048
  28. FISH OIL [Concomitant]
     Active Substance: FISH OIL
     Dosage: 1000 MG, UNK
  29. ONE-A-DAY WOMEN^S [Concomitant]
     Active Substance: VITAMINS
     Dosage: 1 TABLET, ONCE A DAY
     Route: 048
  30. METRONIDAZOLE. [Concomitant]
     Active Substance: METRONIDAZOLE
     Dosage: 250 MG, UNK
  31. DOCUSATE SODIUM. [Concomitant]
     Active Substance: DOCUSATE SODIUM
     Indication: CONSTIPATION
     Dosage: 100 MG, AS NEEDED (1 CAP ORALLY 3 TIMES A DAY)
     Route: 048
  32. FASLODEX [Concomitant]
     Active Substance: FULVESTRANT
     Dosage: UNK
     Dates: start: 20160721
  33. ALPRAZOLAM. [Concomitant]
     Active Substance: ALPRAZOLAM
     Indication: ANXIETY
     Dosage: 0.25 MG, AS NEEDED (EVERY 8 HOURS X 30 DAYS)
     Route: 048
  34. ALPRAZOLAM. [Concomitant]
     Active Substance: ALPRAZOLAM
     Dosage: 0.25 MG, UNK
  35. ONDANSETRON [Concomitant]
     Active Substance: ONDANSETRON
     Indication: VOMITING
     Dosage: 8 MG, AS NEEDED (EVERY 8 HOURS X 30 DAYS)
     Route: 048
  36. GAS-X [Concomitant]
     Active Substance: DIMETHICONE
     Dosage: 80 MG (1 TABLET) AS NEEDED
     Route: 048
  37. XANAX [Concomitant]
     Active Substance: ALPRAZOLAM
     Dosage: 2 MG, UNK
  38. PROCHLORPERAZINE. [Concomitant]
     Active Substance: PROCHLORPERAZINE
     Indication: NAUSEA
     Dosage: 10 MG, AS NEEDED (1 TAB ORALLYB EVERY 6 HOURS)
     Route: 048
  39. FASLODEX [Concomitant]
     Active Substance: FULVESTRANT
     Dosage: 250 MG, UNK
  40. XGEVA [Concomitant]
     Active Substance: DENOSUMAB
     Indication: METASTASES TO BONE
     Dosage: UNK
     Dates: start: 201606
  41. VANCOMYCIN [Concomitant]
     Active Substance: VANCOMYCIN
     Dosage: 125 MG, 4X/DAY (1 CAP(S) ORALLY EVERY 6 HOURS)
     Route: 048

REACTIONS (31)
  - Taste disorder [Unknown]
  - Bacterial infection [Recovered/Resolved]
  - Ascites [Unknown]
  - Hydronephrosis [Unknown]
  - Clostridium difficile infection [Unknown]
  - Proteinuria [Unknown]
  - Anaemia [Unknown]
  - Cellulitis [Recovered/Resolved]
  - Myalgia [Unknown]
  - Oedema peripheral [Unknown]
  - Neoplasm progression [Unknown]
  - Spinal stenosis [Unknown]
  - Pleural effusion [Unknown]
  - Blood creatinine increased [Unknown]
  - Ovarian enlargement [Unknown]
  - Fatigue [Not Recovered/Not Resolved]
  - Condition aggravated [Recovering/Resolving]
  - Anxiety [Recovering/Resolving]
  - Urinary incontinence [Not Recovered/Not Resolved]
  - Peripheral swelling [Unknown]
  - Tumour marker increased [Unknown]
  - Intervertebral disc degeneration [Unknown]
  - Renal failure [Unknown]
  - Product use in unapproved indication [Unknown]
  - Nausea [Not Recovered/Not Resolved]
  - Diarrhoea [Unknown]
  - Back pain [Recovering/Resolving]
  - Headache [Recovering/Resolving]
  - Generalised oedema [Unknown]
  - Hypertension [Recovered/Resolved]
  - Dyspepsia [Recovering/Resolving]

NARRATIVE: CASE EVENT DATE: 201808
